FAERS Safety Report 10416459 (Version 2)
Quarter: 2014Q3

REPORT INFORMATION
  Report Type: Spontaneous
  Country: US (occurrence: US)
  Receive Date: 20140828
  Receipt Date: 20140828
  Transmission Date: 20150326
  Serious: Yes (Hospitalization)
  Sender: FDA-Public Use
  Company Number: US-GLAXOSMITHKLINE-A0889851A

PATIENT
  Sex: Male

DRUGS (1)
  1. AVANDIA [Suspect]
     Active Substance: ROSIGLITAZONE MALEATE
     Indication: DIABETES MELLITUS
     Dosage: 8MG PER DAY
     Route: 048
     Dates: start: 2006, end: 2008

REACTIONS (14)
  - Pulmonary oedema [Unknown]
  - Tricuspid valve disease [Unknown]
  - Mitral valve disease [Unknown]
  - Cardiac failure congestive [Unknown]
  - Cardiogenic shock [Unknown]
  - Ischaemic cardiomyopathy [Unknown]
  - Pleural effusion [Unknown]
  - Cor pulmonale chronic [Unknown]
  - Arteriosclerosis coronary artery [Unknown]
  - Myocardial ischaemia [Unknown]
  - Myocardial infarction [Not Recovered/Not Resolved]
  - Acute coronary syndrome [Unknown]
  - Peripheral vascular disorder [Unknown]
  - Atrial fibrillation [Unknown]
